FAERS Safety Report 19918512 (Version 4)
Quarter: 2022Q3

REPORT INFORMATION
  Report Type: Spontaneous
  Country: US (occurrence: US)
  Receive Date: 20211004
  Receipt Date: 20220729
  Transmission Date: 20221027
  Serious: Yes (Hospitalization, Other)
  Sender: FDA-Public Use
  Company Number: US-BIOGEN-2021BI01046759

PATIENT
  Age: 60 Year
  Sex: Female
  Weight: 56.568 kg

DRUGS (79)
  1. AMPYRA [Suspect]
     Active Substance: DALFAMPRIDINE
     Indication: Gait disturbance
     Dosage: 10 MILLIGRAM, Q 12 HRS
     Route: 048
     Dates: start: 201708, end: 201905
  2. DALFAMPRIDINE [Suspect]
     Active Substance: DALFAMPRIDINE
     Indication: Gait disturbance
     Dosage: 10 MILLIGRAM, Q 12 HRS
     Route: 048
     Dates: start: 201905, end: 20190605
  3. TYSABRI [Suspect]
     Active Substance: NATALIZUMAB
     Indication: Relapsing-remitting multiple sclerosis
     Dosage: 300 MILLIGRAM (300 MG/15 ML) IV INFUSION EVERY 31-32 DAYS
     Route: 042
     Dates: start: 2012
  4. TYSABRI [Suspect]
     Active Substance: NATALIZUMAB
     Dosage: UNK
     Route: 065
     Dates: start: 20120725
  5. TYSABRI [Suspect]
     Active Substance: NATALIZUMAB
     Dosage: 300 MILLIGRAM
     Dates: start: 20160825
  6. TYLENOL [Suspect]
     Active Substance: ACETAMINOPHEN
     Indication: Product used for unknown indication
     Dosage: UNK
     Route: 065
  7. PRIMIDONE [Concomitant]
     Active Substance: PRIMIDONE
     Indication: Raynaud^s phenomenon
     Dosage: PRIMIDONE 50MG ORAL TABLET (PRIMIDONE) 2 PO QAM
     Route: 048
     Dates: start: 20170803
  8. PRIMIDONE [Concomitant]
     Active Substance: PRIMIDONE
     Dosage: 75 MILLIGRAM, BID
     Route: 065
  9. PRIMIDONE [Concomitant]
     Active Substance: PRIMIDONE
     Dosage: 25 MILLIGRAM, HS
     Route: 048
  10. MELATONIN [Concomitant]
     Active Substance: MELATONIN
     Indication: Product used for unknown indication
     Dosage: MELATONIN 3MG ORAL TABLET (MELATONIN) 1 PO QHS
     Route: 048
     Dates: start: 20170803
  11. CALTRATE D3 [Concomitant]
     Indication: Product used for unknown indication
     Dosage: CALTRATE 600+D3 SOFT 600-800MG UNIT ORAL TABLET CHEWABLE (CALCIUM CARB-CHOLECALCIFEROL) 1 PO QD
     Route: 048
     Dates: start: 20170803
  12. CALTRATE D3 [Concomitant]
     Dosage: 1 DOSAGE FORM, BID
     Route: 048
  13. CVS FISH OIL [Concomitant]
     Indication: Product used for unknown indication
     Dosage: CVS FISH OIL 1000MG ORAL CAPSULE (OMEGA-3 FATTY ACIDS) 1 PO QD
     Route: 048
  14. GABAPENTIN [Concomitant]
     Active Substance: GABAPENTIN
     Indication: Spinal stenosis
     Dosage: 300 MILLIGRAM, QD
     Route: 048
  15. GABAPENTIN [Concomitant]
     Active Substance: GABAPENTIN
     Indication: Neck pain
     Dosage: 600 MILLIGRAM, BID
     Route: 048
     Dates: start: 20180430
  16. GABAPENTIN [Concomitant]
     Active Substance: GABAPENTIN
     Dosage: 300 MILLIGRAM, BID
     Route: 048
  17. GABAPENTIN [Concomitant]
     Active Substance: GABAPENTIN
     Dosage: 200 MILLIGRAM, QD
     Route: 065
  18. MELOXICAM [Concomitant]
     Active Substance: MELOXICAM
     Indication: Product used for unknown indication
     Dosage: 15 MILLIGRAM, QD
     Route: 048
     Dates: start: 20180320
  19. VITAMIN B12 [Concomitant]
     Active Substance: CYANOCOBALAMIN
     Indication: Product used for unknown indication
     Dosage: 5000 MICROGRAM, QD
     Route: 048
     Dates: start: 20180320
  20. VITAMIN B12 [Concomitant]
     Active Substance: CYANOCOBALAMIN
     Dosage: 500 MICROGRAM, QD
     Route: 048
  21. BIOTIN [Concomitant]
     Active Substance: BIOTIN
     Indication: Product used for unknown indication
     Dosage: 500 MICROGRAM, QD
     Route: 048
     Dates: start: 20180320
  22. BIOTIN [Concomitant]
     Active Substance: BIOTIN
     Dosage: 2 DOSAGE FORM (2000 MCG), QD
     Route: 048
  23. METAMUCIL [Concomitant]
     Active Substance: PLANTAGO SEED
     Indication: Constipation
     Dosage: METAMUCIL CAPS (PSYLLIUM) 1 PO HS
     Route: 048
     Dates: start: 20180320
  24. METAMUCIL [Concomitant]
     Active Substance: PLANTAGO SEED
     Dosage: 1 TEASPOON QD
     Route: 048
  25. METAMUCIL [Concomitant]
     Active Substance: PLANTAGO SEED
     Dosage: 1 DOSAGE FORM, ORAL WAFER  (1.7 G), QD
     Route: 048
  26. PROBIOTICS NOS [Concomitant]
     Active Substance: PROBIOTICS NOS
     Indication: Product used for unknown indication
     Dosage: 15 BILLION CELL, 1 EVERY NIGHT
     Route: 065
     Dates: start: 20180320
  27. PROBIOTICS NOS [Concomitant]
     Active Substance: PROBIOTICS NOS
     Dosage: PROBIOTIC ORAL CAPSULE (PROBIOTIC PRODUCT) 1 HS
     Route: 048
  28. PROBIOTICS NOS [Concomitant]
     Active Substance: PROBIOTICS NOS
     Dosage: 1 DOSAGE FORM, QD
     Route: 048
  29. VITAMIN D3 [Concomitant]
     Active Substance: CHOLECALCIFEROL
     Indication: Product used for unknown indication
     Dosage: 1 DOSAGE FORM, QD
     Route: 048
  30. VITAMIN D3 [Concomitant]
     Active Substance: CHOLECALCIFEROL
     Dosage: 50 MICROGRAM (2,000 UNIT)
     Route: 048
     Dates: start: 20180320
  31. BUPROPION HYDROCHLORIDE [Concomitant]
     Active Substance: BUPROPION HYDROCHLORIDE
     Indication: Product used for unknown indication
     Dosage: BUPROPION HCL ER (XL) 300 MG ORAL TABLET EXTENDED RELEASE 24 (BUPRROPION HCL) 1 PO QAM
     Route: 048
     Dates: start: 20190930
  32. BUPROPION HYDROCHLORIDE [Concomitant]
     Active Substance: BUPROPION HYDROCHLORIDE
     Dosage: 150 MILLIGRAM, BID
     Route: 065
  33. BUPROPION HYDROCHLORIDE [Concomitant]
     Active Substance: BUPROPION HYDROCHLORIDE
     Dosage: 15 MILLIGRAM, BID
     Route: 065
  34. doxycycline hcylate [Concomitant]
     Indication: Product used for unknown indication
     Dosage: 100 MILLIGRAM, BID
     Route: 048
     Dates: start: 20200721
  35. PROPRANOLOL [Concomitant]
     Active Substance: PROPRANOLOL HYDROCHLORIDE
     Indication: Essential tremor
     Dosage: 40 MILLIGRAM, BID
     Route: 065
  36. PROPRANOLOL [Concomitant]
     Active Substance: PROPRANOLOL HYDROCHLORIDE
     Dosage: 60 MILLIGRAM, TID
     Route: 048
  37. PROPRANOLOL [Concomitant]
     Active Substance: PROPRANOLOL HYDROCHLORIDE
     Dosage: DECREASED BY ONE HALF A PILL PER WEEK
     Route: 065
  38. NUVIGIL [Concomitant]
     Active Substance: ARMODAFINIL
     Indication: Fatigue
     Dosage: UNK
     Route: 065
  39. MIRALAX [Concomitant]
     Active Substance: POLYETHYLENE GLYCOL 3350
     Indication: Constipation
     Dosage: 17 GRAM, HS, EVERYDAY AS NEEDED
     Route: 048
     Dates: start: 20180320
  40. BACLOFEN [Concomitant]
     Active Substance: BACLOFEN
     Indication: Muscle spasms
     Dosage: 10 MILLIGRAM 1/2 AM, 1 PM
     Route: 065
     Dates: start: 20170803
  41. BACLOFEN [Concomitant]
     Active Substance: BACLOFEN
     Indication: Tremor
     Dosage: 10 MILLIGRAM, BID
     Route: 048
  42. KLS [Concomitant]
     Indication: Product used for unknown indication
     Dosage: UNK
     Route: 065
  43. ALLERTEC [CETIRIZINE HYDROCHLORIDE] [Concomitant]
     Indication: Product used for unknown indication
     Dosage: 10 MILLIGRAM, QD
     Route: 048
     Dates: start: 20170803
  44. RETIN-A [Concomitant]
     Active Substance: TRETINOIN
     Indication: Product used for unknown indication
     Dosage: 0.04% GEL WITH PUMP
     Route: 065
     Dates: start: 20200721
  45. DICLOFENAC SODIUM [Concomitant]
     Active Substance: DICLOFENAC SODIUM
     Indication: Product used for unknown indication
     Dosage: UNK
     Route: 065
  46. ONE A DAY MULTI VITAMIN + MINERALS [ASCORBIC ACID;BETACAROTENE;CALCIUM [Concomitant]
     Indication: Product used for unknown indication
     Dosage: 1 DOSAGE FORM, QD
     Route: 048
     Dates: start: 20170803
  47. TIZANIDINE [Concomitant]
     Active Substance: TIZANIDINE
     Indication: Muscle spasms
     Dosage: 2 QHS AND PRN DURING THE DAY
     Route: 065
  48. TIZANIDINE [Concomitant]
     Active Substance: TIZANIDINE
     Dosage: 4 MILLIGRAM, QHS
     Route: 048
  49. TIZANIDINE [Concomitant]
     Active Substance: TIZANIDINE
     Dosage: 2 MILLIGRAM, 2 PILLS HS
     Route: 048
  50. CALTRATE [Concomitant]
     Active Substance: CALCIUM CARBONATE
     Indication: Product used for unknown indication
     Dosage: UNK
     Route: 065
  51. VITAMINS [Concomitant]
     Active Substance: VITAMINS
     Indication: Product used for unknown indication
     Dosage: UNK
     Route: 065
  52. FLOMAX [Concomitant]
     Active Substance: TAMSULOSIN HYDROCHLORIDE
     Indication: Neurogenic bladder
     Dosage: UNK
     Route: 065
  53. UNSPECIFIED INGREDIENT [Concomitant]
     Active Substance: UNSPECIFIED INGREDIENT
     Indication: Spinal stenosis
     Dosage: UNK
     Route: 065
  54. UNSPECIFIED INGREDIENT [Concomitant]
     Active Substance: UNSPECIFIED INGREDIENT
     Indication: Neck pain
  55. NITROFURANTOIN [Concomitant]
     Active Substance: NITROFURANTOIN
     Indication: Micturition urgency
     Dosage: 100 MILLIGRAM, Q 12 HRS WITH FOOD
     Route: 048
  56. NITROFURANTOIN [Concomitant]
     Active Substance: NITROFURANTOIN
     Indication: Urinary incontinence
  57. GLUCOSAMINE [Concomitant]
     Active Substance: GLUCOSAMINE
     Indication: Product used for unknown indication
     Dosage: UNK, QD
     Route: 065
  58. INDERAL [Concomitant]
     Active Substance: PROPRANOLOL HYDROCHLORIDE
     Indication: Tremor
     Dosage: 40 MILLIGRAM, BID
     Route: 065
  59. PLETAL [Concomitant]
     Active Substance: CILOSTAZOL
     Indication: Raynaud^s phenomenon
     Dosage: UNK
     Route: 065
  60. MOVE FREE JOINT HEALTH [Concomitant]
     Indication: Product used for unknown indication
     Dosage: 750MG-100MG-1.65MG-108 MG
     Route: 048
     Dates: start: 20170803
  61. MOVE FREE JOINT HEALTH [Concomitant]
     Dosage: UNK, BID
     Route: 065
  62. FISH OIL [Concomitant]
     Active Substance: FISH OIL
     Indication: Product used for unknown indication
     Dosage: 300-1000 MG, QD
     Route: 048
     Dates: start: 20170803
  63. FISH OIL [Concomitant]
     Active Substance: FISH OIL
     Dosage: 1 DOSAGE FORM, BID
     Route: 048
  64. STOOL SOFTENER (DOCUSATE) [Concomitant]
     Active Substance: DOCUSATE
     Indication: Product used for unknown indication
     Dosage: UNK, HS
     Route: 065
     Dates: start: 20180320
  65. OXYCODONE [Concomitant]
     Active Substance: OXYCODONE
     Indication: Product used for unknown indication
     Dosage: 5 MILLIGRAM
     Route: 065
  66. ACETAMINOPHEN [Concomitant]
     Active Substance: ACETAMINOPHEN
     Indication: Product used for unknown indication
     Dosage: 2 DOSAGE FORM (1300 MG), Q 8 HRS PRN
     Route: 048
  67. MAGNESIUM HYDROXIDE [Concomitant]
     Active Substance: MAGNESIUM HYDROXIDE
     Indication: Constipation
     Dosage: 2.4 GRAM, QD, AS NEEDED
     Route: 048
  68. METHYLCOBALAMIN [Concomitant]
     Active Substance: METHYLCOBALAMIN
     Indication: Product used for unknown indication
     Dosage: 5000 MICROGRAM, QD
     Route: 060
  69. MYRBETRIQ [Concomitant]
     Active Substance: MIRABEGRON
     Indication: Product used for unknown indication
     Dosage: 1 DOSAGE FORM, QD
     Route: 048
  70. ZOFRAN [Concomitant]
     Active Substance: ONDANSETRON HYDROCHLORIDE
     Indication: Prophylaxis of nausea and vomiting
     Dosage: 1 DOSAGE FORM (4 MG), Q 6 HRS AS NEEDED
     Route: 048
  71. LORAZEPAM [Concomitant]
     Active Substance: LORAZEPAM
     Indication: Product used for unknown indication
     Dosage: 1 MILLIGRAM, IV PUSH
     Route: 042
  72. LORAZEPAM [Concomitant]
     Active Substance: LORAZEPAM
     Dosage: 2 MILLIGRAM, IV PUSH
     Route: 042
  73. LORAZEPAM [Concomitant]
     Active Substance: LORAZEPAM
     Dosage: 2 MILLIGRAM
     Route: 065
     Dates: start: 20190605
  74. RINGER LACTAT [CALCIUM CHLORIDE;MAGNESIUM CHLORIDE;POTASSIUM CHLORIDE; [Concomitant]
     Indication: Product used for unknown indication
     Dosage: 1000 MILLILITER, ED IV HYDRATION INJECTION
     Route: 065
  75. LOVENOX [Concomitant]
     Active Substance: ENOXAPARIN SODIUM
     Indication: Product used for unknown indication
     Dosage: 40 MILLIGRAM (40 MG/0.4 ML INJECTIBLE SOLUTION), QD,
     Route: 058
  76. SENNA S [Concomitant]
     Active Substance: DOCUSATE SODIUM\SENNA LEAF
     Indication: Product used for unknown indication
     Dosage: 1 DOSAGE FORM, BID
     Route: 048
  77. WELLBUTRIN [Concomitant]
     Active Substance: BUPROPION HYDROCHLORIDE
     Indication: Product used for unknown indication
     Dosage: 2 DOSAGE FORM, BID
     Route: 048
  78. AMITRIPTYLINE [Concomitant]
     Active Substance: AMITRIPTYLINE
     Indication: Product used for unknown indication
     Dosage: 1 DOSAGE FORM (10 MG), BID
     Route: 048
  79. OTHER THERAPEUTIC PRODUCTS (aminopyradine) [Concomitant]
     Indication: Product used for unknown indication
     Dosage: UNK
     Route: 065

REACTIONS (21)
  - Spondylitic myelopathy [Not Recovered/Not Resolved]
  - Alanine aminotransferase increased [Recovered/Resolved]
  - Aspartate aminotransferase increased [Recovered/Resolved]
  - Central nervous system lesion [Unknown]
  - Oedema peripheral [Unknown]
  - Protein total decreased [Unknown]
  - Blood pressure increased [Unknown]
  - Hyperhidrosis [Unknown]
  - Musculoskeletal disorder [Unknown]
  - Blood sodium decreased [Unknown]
  - Blood glucose increased [Unknown]
  - Blood lactic acid increased [Unknown]
  - Venous oxygen partial pressure increased [Unknown]
  - Muscular weakness [Unknown]
  - Neck pain [Unknown]
  - Chills [Unknown]
  - Gait inability [Unknown]
  - Dysstasia [Unknown]
  - Tremor [Unknown]
  - Adverse drug reaction [Recovered/Resolved]
  - Back pain [Unknown]

NARRATIVE: CASE EVENT DATE: 20190605
